FAERS Safety Report 7767732-9 (Version None)
Quarter: 2011Q3

REPORT INFORMATION
  Report Type: 
  Country: None (occurrence: None)
  Receive Date: 20110922
  Receipt Date: 20110209
  Transmission Date: 20111222
  Serious: Yes (Other)
  Sender: FDA-Public Use
  Company Number: US-ASTRAZENECA-2006UW26616

PATIENT
  Age: 51 Year
  Sex: Female
  Weight: 74.8 kg

DRUGS (14)
  1. GEODON [Concomitant]
     Dosage: 300 MG
     Dates: start: 19920101, end: 20000101
  2. THORAZINE [Concomitant]
     Dates: start: 19761001, end: 19770401
  3. ABILIFY [Concomitant]
  4. CLOZAPINE [Concomitant]
     Dates: start: 19761001, end: 19770401
  5. ZYPREXA [Concomitant]
     Dates: start: 20010301, end: 20040501
  6. TRIEPTIL [Concomitant]
     Dates: start: 20050501
  7. SEROQUEL [Suspect]
     Indication: SCHIZOPHRENIA
     Dosage: 175 TO 2000 MG
     Route: 048
     Dates: start: 20010301, end: 20040825
  8. SEROQUEL [Suspect]
     Indication: SCHIZOAFFECTIVE DISORDER
     Dosage: 175 TO 2000 MG
     Route: 048
     Dates: start: 20010301, end: 20040825
  9. SEROQUEL [Suspect]
     Indication: BIPOLAR DISORDER
     Dosage: 175 TO 2000 MG
     Route: 048
     Dates: start: 20010301, end: 20040825
  10. HALDOL [Concomitant]
     Dates: start: 20060301, end: 20060601
  11. SYNTHROID [Concomitant]
     Dates: start: 19870101
  12. TRILAFON [Concomitant]
     Dates: start: 19761001, end: 19770401
  13. KLONOPIN [Concomitant]
     Dates: start: 20050201
  14. TRAZEDON [Concomitant]
     Dosage: 300 MG
     Dates: start: 20050901

REACTIONS (10)
  - HYPERLIPIDAEMIA [None]
  - TYPE 2 DIABETES MELLITUS [None]
  - HYPERGLYCAEMIA [None]
  - BLOOD CHOLESTEROL INCREASED [None]
  - THYROID DISORDER [None]
  - GASTROINTESTINAL DISORDER [None]
  - PANCREATITIS [None]
  - CARDIAC DISORDER [None]
  - BLOOD TRIGLYCERIDES INCREASED [None]
  - PANCREATITIS ACUTE [None]
